FAERS Safety Report 11885592 (Version 11)
Quarter: 2022Q1

REPORT INFORMATION
  Report Type: Other
  Country: GB (occurrence: GB)
  Receive Date: 20160104
  Receipt Date: 20220225
  Transmission Date: 20220423
  Serious: Yes (Hospitalization, Other)
  Sender: FDA-Public Use
  Company Number: GB-ROCHE-1645086

PATIENT
  Age: 56 Year
  Sex: Female

DRUGS (21)
  1. PERTUZUMAB [Suspect]
     Active Substance: PERTUZUMAB
     Indication: HER2 positive breast cancer
     Route: 042
     Dates: start: 20150728, end: 20150728
  2. PERTUZUMAB [Suspect]
     Active Substance: PERTUZUMAB
     Route: 042
     Dates: start: 20150819, end: 20150909
  3. DOCETAXEL [Suspect]
     Active Substance: DOCETAXEL
     Indication: HER2 positive breast cancer
     Route: 042
     Dates: start: 20150728, end: 20150909
  4. TRASTUZUMAB [Suspect]
     Active Substance: TRASTUZUMAB
     Indication: HER2 positive breast cancer
     Route: 042
     Dates: start: 20150728, end: 20150728
  5. TRASTUZUMAB [Suspect]
     Active Substance: TRASTUZUMAB
     Route: 042
     Dates: start: 20150819, end: 20150909
  6. ZOLEDRONIC ACID [Concomitant]
     Active Substance: ZOLEDRONIC ACID
     Route: 042
     Dates: start: 20150729, end: 20150819
  7. ZOLEDRONIC ACID [Concomitant]
     Active Substance: ZOLEDRONIC ACID
     Route: 042
     Dates: start: 20150909
  8. METOCLOPRAMIDE [Concomitant]
     Active Substance: METOCLOPRAMIDE
     Route: 042
     Dates: start: 20150728, end: 20150728
  9. METOCLOPRAMIDE [Concomitant]
     Active Substance: METOCLOPRAMIDE
     Route: 042
     Dates: start: 20150819, end: 20150819
  10. METOCLOPRAMIDE [Concomitant]
     Active Substance: METOCLOPRAMIDE
     Route: 042
     Dates: start: 20150909, end: 20150909
  11. DEXAMETHASONE [Concomitant]
     Active Substance: DEXAMETHASONE
     Route: 042
     Dates: start: 20150728, end: 20150728
  12. DEXAMETHASONE [Concomitant]
     Active Substance: DEXAMETHASONE
     Route: 042
     Dates: start: 20150819, end: 20150819
  13. DEXAMETHASONE [Concomitant]
     Active Substance: DEXAMETHASONE
     Route: 048
     Dates: start: 20150820, end: 20150822
  14. DEXAMETHASONE [Concomitant]
     Active Substance: DEXAMETHASONE
     Route: 048
     Dates: start: 20150910, end: 20150912
  15. ZOPICLONE [Concomitant]
     Active Substance: ZOPICLONE
     Dosage: AS NEEDED
     Route: 048
  16. CHOLECALCIFEROL [Concomitant]
     Active Substance: CHOLECALCIFEROL
     Route: 048
  17. HYDROCORTISONE [Concomitant]
     Active Substance: HYDROCORTISONE
     Route: 042
     Dates: start: 20150909, end: 20150909
  18. HALOPERIDOL [Concomitant]
     Active Substance: HALOPERIDOL
     Dosage: AS NEEDED
     Route: 058
  19. DIAMORPHINE [Concomitant]
     Active Substance: DIAMORPHINE
     Dosage: AS NEEDED
     Route: 058
  20. SCOPOLAMINE [Concomitant]
     Active Substance: SCOPOLAMINE
     Route: 058
  21. CHLORPHENIRAMINE MALEATE [Concomitant]
     Active Substance: CHLORPHENIRAMINE MALEATE
     Route: 042
     Dates: start: 20150909, end: 20150909

REACTIONS (5)
  - Dyspnoea [Recovered/Resolved]
  - Peripheral swelling [Recovered/Resolved with Sequelae]
  - Device occlusion [Recovered/Resolved with Sequelae]
  - Cough [Not Recovered/Not Resolved]
  - Pneumonia [Unknown]

NARRATIVE: CASE EVENT DATE: 20150918
